FAERS Safety Report 23178646 (Version 3)
Quarter: 2023Q4

REPORT INFORMATION
  Report Type: Spontaneous
  Country: US (occurrence: US)
  Receive Date: 20231113
  Receipt Date: 20231128
  Transmission Date: 20240110
  Serious: No
  Sender: FDA-Public Use
  Company Number: US-BRISTOL-MYERS SQUIBB COMPANY-2023-162512

PATIENT
  Age: 52 Year
  Sex: Female

DRUGS (1)
  1. ORENCIA [Suspect]
     Active Substance: ABATACEPT
     Indication: Rheumatoid arthritis
     Dosage: ONGOING
     Route: 058
     Dates: start: 202310

REACTIONS (5)
  - Joint swelling [Unknown]
  - Arthralgia [Unknown]
  - Brain fog [Unknown]
  - Drug ineffective [Unknown]
  - Memory impairment [Unknown]

NARRATIVE: CASE EVENT DATE: 20231001
